FAERS Safety Report 6112192-7 (Version None)
Quarter: 2009Q1

REPORT INFORMATION
  Report Type: 
  Country: None (occurrence: None)
  Receive Date: 20090310
  Receipt Date: 20090302
  Transmission Date: 20090719
  Serious: Yes (Death)
  Sender: FDA-Public Use
  Company Number: 2009-192590-NL

PATIENT

DRUGS (1)
  1. IMPLANON [Suspect]
     Dosage: TRANSMAMMARY

REACTIONS (1)
  - DRUG EXPOSURE VIA BREAST MILK [None]
